FAERS Safety Report 6892963-X (Version None)
Quarter: 2010Q3

REPORT INFORMATION
  Report Type: 
  Country: None (occurrence: None)
  Receive Date: 20100731
  Receipt Date: 20081120
  Transmission Date: 20110219
  Serious: No
  Sender: FDA-Public Use
  Company Number: US-PFIZER INC-2008098734

PATIENT
  Sex: Male
  Weight: 95.9 kg

DRUGS (7)
  1. GABAPENTIN [Suspect]
     Indication: BACK INJURY
     Dates: start: 20050101
  2. GABAPENTIN [Suspect]
     Indication: MUSCULOSKELETAL PAIN
  3. MS CONTIN [Concomitant]
  4. OXYCODONE HCL [Concomitant]
  5. NIFEDIPINE [Concomitant]
  6. SIMVASTATIN [Concomitant]
  7. PAXIL [Concomitant]

REACTIONS (1)
  - DRUG INEFFECTIVE [None]
